FAERS Safety Report 8534592-8 (Version None)
Quarter: 2012Q3

REPORT INFORMATION
  Report Type: 
  Country: None (occurrence: None)
  Receive Date: 20120724
  Receipt Date: 20120710
  Transmission Date: 20120928
  Serious: No
  Sender: FDA-Public Use
  Company Number: US-ASTRAZENECA-2012SE47911

PATIENT
  Age: 57 Year
  Sex: Female
  Weight: 90.7 kg

DRUGS (8)
  1. FLEXERIL [Concomitant]
  2. SYNTHROID [Concomitant]
  3. SEROQUEL XR [Suspect]
     Indication: BIPOLAR DISORDER
     Route: 048
  4. LIPITOR [Concomitant]
  5. AMBIEN [Concomitant]
  6. PRISPIT [Concomitant]
  7. PERCOCET [Concomitant]
  8. GABAPENTIN [Concomitant]

REACTIONS (2)
  - INTENTIONAL DRUG MISUSE [None]
  - IRRITABILITY [None]
